FAERS Safety Report 6332373-7 (Version None)
Quarter: 2009Q3

REPORT INFORMATION
  Report Type: 
  Country: None (occurrence: None)
  Receive Date: 20090828
  Receipt Date: 20090825
  Transmission Date: 20100115
  Serious: Yes (Hospitalization)
  Sender: FDA-Public Use
  Company Number: FR-BRISTOL-MYERS SQUIBB COMPANY-14755839

PATIENT
  Age: 68 Year
  Sex: Male

DRUGS (4)
  1. CETUXIMAB [Suspect]
     Indication: BILE DUCT CANCER
     Dosage: LAST DOSE ON 06AUG09.
     Route: 042
     Dates: start: 20090709
  2. ELOXATIN [Suspect]
     Indication: BILE DUCT CANCER
     Dosage: LAST DOSE ON 07AUG09.
     Route: 042
     Dates: start: 20090709
  3. GEMZAR [Suspect]
     Indication: BILE DUCT CANCER
     Dosage: LAST DOSE ON 06AUG09.
     Route: 042
     Dates: start: 20090709
  4. EPREX [Concomitant]

REACTIONS (2)
  - ANAEMIA [None]
  - HYPERTENSION [None]
